FAERS Safety Report 5574345-6 (Version None)
Quarter: 2007Q4

REPORT INFORMATION
  Report Type: 
  Country: None (occurrence: None)
  Receive Date: 20071227
  Receipt Date: 20071213
  Transmission Date: 20080405
  Serious: Yes (Hospitalization)
  Sender: FDA-Public Use
  Company Number: ES-BAYER-200718327GPV

PATIENT
  Age: 33 Year
  Sex: Male

DRUGS (6)
  1. ASPIRIN [Suspect]
     Indication: PRE-EXISTING CONDITION IMPROVED
     Route: 048
  2. EPHEDRINE [Suspect]
     Indication: PRE-EXISTING CONDITION IMPROVED
  3. CAFFEINE CITRATE [Concomitant]
     Indication: ENERGY INCREASED
  4. VITAMINE COMPLEXES [Concomitant]
     Indication: ENERGY INCREASED
  5. MAGNESIUM [Concomitant]
     Indication: ENERGY INCREASED
  6. GUARANA [Concomitant]

REACTIONS (7)
  - APHASIA [None]
  - CEREBRAL HAEMORRHAGE [None]
  - HEADACHE [None]
  - MENINGEAL DISORDER [None]
  - NUCHAL RIGIDITY [None]
  - PYREXIA [None]
  - VOMITING [None]
